FAERS Safety Report 18434983 (Version 1)
Quarter: 2020Q4

REPORT INFORMATION
  Report Type: Other
  Country: SA (occurrence: SA)
  Receive Date: 20201028
  Receipt Date: 20201028
  Transmission Date: 20210114
  Serious: Yes (Life-Threatening)
  Sender: FDA-Public Use
  Company Number: SA-VISTA PHARMACEUTICALS INC.-2093214

PATIENT
  Age: 56 Year
  Sex: Male

DRUGS (7)
  1. MEROPENEM. [Concomitant]
     Active Substance: MEROPENEM
     Route: 042
  2. DIPHENHYDRAMINE. [Concomitant]
     Active Substance: DIPHENHYDRAMINE
     Route: 042
  3. CETIRIZINE [Concomitant]
     Active Substance: CETIRIZINE HYDROCHLORIDE
     Route: 065
  4. HYDROCORTISONE (HYDROCORTISONE ACETATE) [Concomitant]
     Active Substance: HYDROCORTISONE ACETATE
     Route: 042
  5. TIGECYCLINE. [Concomitant]
     Active Substance: TIGECYCLINE
     Route: 042
  6. SULFAMETHOXAZOLE AND TRIMETHOPRIM [Suspect]
     Active Substance: SULFAMETHOXAZOLE\TRIMETHOPRIM
     Indication: ACINETOBACTER INFECTION
     Route: 042
  7. ADRENALINE [Concomitant]
     Active Substance: EPINEPHRINE
     Route: 042

REACTIONS (1)
  - Drug ineffective [Unknown]
